FAERS Safety Report 15285949 (Version 3)
Quarter: 2018Q3

REPORT INFORMATION
  Report Type: Spontaneous
  Country: JP (occurrence: JP)
  Receive Date: 20180816
  Receipt Date: 20180920
  Transmission Date: 20181010
  Serious: Yes (Other)
  Sender: FDA-Public Use
  Company Number: JP-ASTRAZENECA-2018SF02354

PATIENT
  Age: 17577 Day
  Sex: Female
  Weight: 161 kg

DRUGS (3)
  1. HIRUDOID [Concomitant]
     Active Substance: GLYCOSAMINOGLYCANS
     Dosage: TWO TIMES A DAY
     Route: 062
     Dates: start: 20180605
  2. LIHOMUCIN [Concomitant]
     Dosage: FOUR TIMES A DAY
     Route: 047
     Dates: start: 20180605
  3. TAGRISSO [Suspect]
     Active Substance: OSIMERTINIB
     Indication: NON-SMALL CELL LUNG CANCER
     Route: 048
     Dates: start: 20180604, end: 20180724

REACTIONS (1)
  - Pancytopenia [Recovered/Resolved]

NARRATIVE: CASE EVENT DATE: 20180626
